FAERS Safety Report 13903207 (Version 4)
Quarter: 2017Q4

REPORT INFORMATION
  Report Type: Report from Study
  Country: CO (occurrence: CO)
  Receive Date: 20170824
  Receipt Date: 20171004
  Transmission Date: 20180320
  Serious: Yes (Death, Life-Threatening, Hospitalization, Other)
  Sender: FDA-Public Use
  Company Number: PHHY2017CO115668

PATIENT
  Sex: Male
  Weight: 70 kg

DRUGS (6)
  1. LOSARTAN. [Suspect]
     Active Substance: LOSARTAN
     Indication: PRODUCT USED FOR UNKNOWN INDICATION
     Route: 065
  2. ACETAMINOPHEN. [Concomitant]
     Active Substance: ACETAMINOPHEN
     Indication: PRODUCT USED FOR UNKNOWN INDICATION
     Route: 065
  3. REVOLADE [Suspect]
     Active Substance: ELTROMBOPAG
     Dosage: 25 MG, BID
     Route: 048
  4. TIROXIN [Concomitant]
     Indication: PRODUCT USED FOR UNKNOWN INDICATION
     Route: 065
  5. LEVOTHYROXINE. [Suspect]
     Active Substance: LEVOTHYROXINE
     Indication: PRODUCT USED FOR UNKNOWN INDICATION
     Route: 065
  6. REVOLADE [Suspect]
     Active Substance: ELTROMBOPAG
     Indication: THROMBOCYTOPENIC PURPURA
     Dosage: 50 MG, BID
     Route: 048
     Dates: start: 20170625

REACTIONS (14)
  - General physical health deterioration [Unknown]
  - Prostatitis [Unknown]
  - Cardiac failure [Unknown]
  - Pulmonary mass [Unknown]
  - Pyrexia [Unknown]
  - Blood cholesterol abnormal [Unknown]
  - Nosocomial infection [Fatal]
  - Platelet count decreased [Unknown]
  - Renal failure [Unknown]
  - Blood pressure increased [Unknown]
  - Nervous system disorder [Unknown]
  - Pneumonia [Unknown]
  - Respiratory failure [Unknown]
  - Hepatic failure [Unknown]
